FAERS Safety Report 4438825-9 (Version None)
Quarter: 2004Q3

REPORT INFORMATION
  Report Type: 
  Country: None (occurrence: None)
  Receive Date: 20040901
  Receipt Date: 20040826
  Transmission Date: 20050211
  Serious: Yes (Hospitalization)
  Sender: FDA-Public Use
  Company Number: US-JNJFOC-20040602492

PATIENT
  Sex: Female
  Weight: 44 kg

DRUGS (3)
  1. PROPULSID [Suspect]
     Route: 049
     Dates: start: 19980205, end: 20000101
  2. PREVACID [Concomitant]
  3. PRILOSEC [Concomitant]

REACTIONS (4)
  - CHEST DISCOMFORT [None]
  - DEPRESSION [None]
  - PALPITATIONS [None]
  - SUICIDAL IDEATION [None]
